FAERS Safety Report 6567643-0 (Version None)
Quarter: 2010Q1

REPORT INFORMATION
  Report Type: 
  Country: None (occurrence: None)
  Receive Date: 20100202
  Receipt Date: 20100129
  Transmission Date: 20100710
  Serious: Yes (Other)
  Sender: FDA-Public Use
  Company Number: US-BRISTOL-MYERS SQUIBB COMPANY-14942379

PATIENT
  Age: 56 Year
  Sex: Female

DRUGS (6)
  1. ABILIFY [Suspect]
     Indication: BIPOLAR DISORDER
     Dosage: HAD BEEN UPTO 7.5 MG DAILY FOR ABOUT A MONTH.
     Route: 048
     Dates: start: 20080625, end: 20090908
  2. ABILIFY [Suspect]
     Indication: MOOD SWINGS
     Dosage: HAD BEEN UPTO 7.5 MG DAILY FOR ABOUT A MONTH.
     Route: 048
     Dates: start: 20080625, end: 20090908
  3. LEVOTHYROXINE SODIUM [Concomitant]
     Dosage: THERAPY ONGOING
  4. GABAPENTIN [Concomitant]
     Dosage: 1 DOSAGE FORM = 300 MG DURING AM + 900 MG HOUR BEFORE SLEEP.
  5. LICO3 [Concomitant]
     Dosage: 1 DF = 600MG/900MG
     Dates: start: 20090902
  6. BUPROPION HCL [Concomitant]
     Dosage: 08JUN09-21AUG09,22OCT09-PRESENT 100 MG HOUR BEFORE SLEEP
     Dates: start: 20090608

REACTIONS (1)
  - TARDIVE DYSKINESIA [None]
